FAERS Safety Report 11277221 (Version 1)
Quarter: 2015Q3

REPORT INFORMATION
  Report Type: Spontaneous
  Country: SE (occurrence: SE)
  Receive Date: 20150716
  Receipt Date: 20150716
  Transmission Date: 20151125
  Serious: Yes (Other)
  Sender: FDA-Public Use
  Company Number: SE-TEVA-578324ISR

PATIENT
  Age: 80 Year
  Sex: Female

DRUGS (1)
  1. MEMANTINE. [Suspect]
     Active Substance: MEMANTINE
     Route: 048

REACTIONS (2)
  - Product substitution issue [Unknown]
  - Agitation [Unknown]
